FAERS Safety Report 11132305 (Version 1)
Quarter: 2015Q2

REPORT INFORMATION
  Report Type: Spontaneous
  Country: GR (occurrence: GR)
  Receive Date: 20150522
  Receipt Date: 20150522
  Transmission Date: 20150821
  Serious: Yes (Hospitalization, Other)
  Sender: FDA-Public Use
  Company Number: GR-ACTAVIS-2015-09900

PATIENT
  Age: 80 Year
  Sex: Female

DRUGS (1)
  1. DONEPEZIL (UNKNOWN) [Suspect]
     Active Substance: DONEPEZIL
     Indication: DEMENTIA ALZHEIMER^S TYPE
     Dosage: 30 MG, DAILY
     Route: 065

REACTIONS (3)
  - Accidental overdose [Recovered/Resolved]
  - Myoclonus [Recovered/Resolved]
  - Incorrect dose administered [Recovered/Resolved]
